FAERS Safety Report 8362309-9 (Version None)
Quarter: 2012Q2

REPORT INFORMATION
  Report Type: 
  Country: None (occurrence: None)
  Receive Date: 20120515
  Receipt Date: 20120503
  Transmission Date: 20120825
  Serious: Yes (Hospitalization, Other)
  Sender: FDA-Public Use
  Company Number: FI-ELI_LILLY_AND_COMPANY-FI201205001497

PATIENT
  Sex: Female

DRUGS (15)
  1. OMEPRAZOLE [Concomitant]
     Indication: ABDOMINAL DISCOMFORT
  2. CELEBREX [Concomitant]
     Indication: PAIN
  3. MAGNESIUM [Concomitant]
     Indication: DIURETIC THERAPY
  4. VANCOMYCIN [Concomitant]
     Indication: ANTIBIOTIC THERAPY
  5. SYMBICORT [Concomitant]
     Indication: ASTHMA
     Dosage: UNK
  6. WARFARIN SODIUM [Concomitant]
     Indication: ANTICOAGULANT THERAPY
  7. CALCI CHEW D3 [Concomitant]
     Indication: MEDICAL DIET
     Dosage: UNK
  8. FORTEO [Suspect]
     Indication: OSTEOPOROSIS
     Dosage: 20 UG, QD
     Route: 058
     Dates: start: 20110524, end: 20120101
  9. PREDNISOLONE [Concomitant]
     Indication: ARTHRITIS
     Dosage: UNK
  10. FUROSEMIDE [Concomitant]
     Indication: DIURETIC THERAPY
  11. ACETAMINOPHEN [Concomitant]
     Indication: PAIN
  12. NALTREXONE HYDROCHLORIDE [Concomitant]
     Indication: ARTHRITIS
  13. ACETAMINOPHEN [Concomitant]
     Indication: PAIN
  14. BISOPROLOL FUMARATE [Concomitant]
     Indication: CARDIAC DISORDER
     Dosage: UNK
  15. PRECOSA [Concomitant]
     Indication: ANTIDIARRHOEAL SUPPORTIVE CARE

REACTIONS (6)
  - GENERAL PHYSICAL CONDITION ABNORMAL [None]
  - CLOSTRIDIAL INFECTION [None]
  - SKIN INJURY [None]
  - DYSPNOEA [None]
  - HAEMORRHOIDS [None]
  - WEIGHT DECREASED [None]
